FAERS Safety Report 14393536 (Version 1)
Quarter: 2018Q1

REPORT INFORMATION
  Report Type: Spontaneous
  Country: US (occurrence: US)
  Receive Date: 20180115
  Receipt Date: 20180115
  Transmission Date: 20180509
  Serious: Yes (Hospitalization)
  Sender: FDA-Public Use
  Company Number: None

PATIENT
  Age: 86 Year
  Sex: Male

DRUGS (11)
  1. MURO [Concomitant]
  2. METOPROLOL TARTRATE. [Concomitant]
     Active Substance: METOPROLOL TARTRATE
  3. CAPECITABINE. [Suspect]
     Active Substance: CAPECITABINE
     Indication: COLON CANCER
     Route: 048
     Dates: start: 20170914
  4. CENTRUM [Concomitant]
     Active Substance: VITAMINS
  5. COMBIGAN [Concomitant]
     Active Substance: BRIMONIDINE TARTRATE\TIMOLOL MALEATE
  6. FISH OIL [Concomitant]
     Active Substance: FISH OIL
  7. SYNTHROID [Concomitant]
     Active Substance: LEVOTHYROXINE SODIUM
  8. PRESERVISION [Concomitant]
     Active Substance: MINERALS\VITAMINS
  9. PROBENECID. [Concomitant]
     Active Substance: PROBENECID
  10. VITAMIN D3 [Concomitant]
     Active Substance: CHOLECALCIFEROL
  11. OCUVITE [Concomitant]
     Active Substance: VITAMINS

REACTIONS (2)
  - Palmar-plantar erythrodysaesthesia syndrome [None]
  - Diarrhoea [None]

NARRATIVE: CASE EVENT DATE: 20171205
